FAERS Safety Report 4884128-8 (Version None)
Quarter: 2005Q4

REPORT INFORMATION
  Report Type: 
  Country: None (occurrence: None)
  Receive Date: 20051201
  Receipt Date: 20050912
  Transmission Date: 20060501
  Serious: No
  Sender: FDA-Public Use
  Company Number: 2005PV001985

PATIENT
  Age: 64 Year
  Sex: Male
  Weight: 90.7194 kg

DRUGS (11)
  1. BYETTA [Suspect]
     Indication: DIABETES MELLITUS NON-INSULIN-DEPENDENT
     Dosage: 10 MCG; BID; SC
     Route: 058
     Dates: start: 20050801
  2. ASACOL [Concomitant]
  3. MERCAPTOPURINE [Concomitant]
  4. CARDIZEM [Concomitant]
  5. LIPITOR [Concomitant]
  6. PLAVIX [Concomitant]
  7. COZAAR [Concomitant]
  8. TOPROL-XL [Concomitant]
  9. LEXAPRO [Concomitant]
  10. BENICAR [Concomitant]
  11. PROTONIX [Concomitant]

REACTIONS (2)
  - ASTHENIA [None]
  - SOMNOLENCE [None]
